FAERS Safety Report 6894527-0 (Version None)
Quarter: 2010Q3

REPORT INFORMATION
  Report Type: 
  Country: None (occurrence: None)
  Receive Date: 20100802
  Receipt Date: 20100727
  Transmission Date: 20110219
  Serious: Yes (Other)
  Sender: FDA-Public Use
  Company Number: JP-BAYER-201013686BYL

PATIENT
  Age: 63 Year
  Sex: Male

DRUGS (6)
  1. NEXAVAR [Suspect]
     Indication: HEPATIC NEOPLASM MALIGNANT
     Dosage: TOTAL DAILY DOSE: 400 MG  UNIT DOSE: 200 MG
     Route: 048
     Dates: start: 20100622, end: 20100628
  2. URSO 250 [Concomitant]
     Indication: LIVER DISORDER
     Route: 048
  3. RABEPRAZOLE SODIUM [Concomitant]
     Indication: ABDOMINAL PAIN UPPER
     Route: 048
  4. NOVAMIN [Concomitant]
     Indication: VOMITING
     Route: 048
     Dates: start: 20100601
  5. LORAZEPAM [Concomitant]
     Indication: INSOMNIA
     Route: 048
     Dates: start: 20100601
  6. LASIX [Concomitant]
     Indication: ASCITES
     Route: 048
     Dates: start: 20100601

REACTIONS (1)
  - HEPATIC FUNCTION ABNORMAL [None]
